FAERS Safety Report 19430866 (Version 1)
Quarter: 2021Q2

REPORT INFORMATION
  Report Type: Spontaneous
  Country: US (occurrence: US)
  Receive Date: 20210617
  Receipt Date: 20210617
  Transmission Date: 20210717
  Serious: Yes (Other)
  Sender: FDA-Public Use
  Company Number: US-BAYER-2021-156629

PATIENT

DRUGS (3)
  1. COVID?19 VACCINE [Concomitant]
     Dosage: UNK
     Dates: start: 20210518
  2. ALEVE [Suspect]
     Active Substance: NAPROXEN SODIUM
  3. IBUPROFEN. [Concomitant]
     Active Substance: IBUPROFEN
     Dosage: 3 DF

REACTIONS (4)
  - Tinnitus [Unknown]
  - Heart rate increased [Unknown]
  - Cardiac flutter [Unknown]
  - Headache [Unknown]
